FAERS Safety Report 8363778-0 (Version None)
Quarter: 2012Q2

REPORT INFORMATION
  Report Type: 
  Country: None (occurrence: None)
  Receive Date: 20120515
  Receipt Date: 20120515
  Transmission Date: 20120825
  Serious: Yes (Other)
  Sender: FDA-Public Use
  Company Number: None

PATIENT
  Sex: Male
  Weight: 125.5 kg

DRUGS (7)
  1. INSULIN GLARGINE [Concomitant]
  2. TRIMIX COMPOUNDING PHARMACY [Suspect]
     Indication: ERECTILE DYSFUNCTION
     Dosage: 0.15 MG? PRN SQ
     Route: 058
     Dates: start: 20120410, end: 20120513
  3. INSULIN ASPART [Concomitant]
  4. AMLODIPINE BESYLATE [Concomitant]
  5. CHLORTHALIDONE [Concomitant]
  6. LOSARTAN POTASSIUM [Concomitant]
  7. SLIDINE SCALE MELOXICAM [Concomitant]

REACTIONS (3)
  - FROSTBITE [None]
  - PRIAPISM [None]
  - HYPERTENSIVE CRISIS [None]
